FAERS Safety Report 17036545 (Version 1)
Quarter: 2019Q4

REPORT INFORMATION
  Report Type: Spontaneous
  Country: US (occurrence: US)
  Receive Date: 20191015
  Receipt Date: 20191015
  Transmission Date: 20200122
  Serious: Yes (Hospitalization)
  Sender: FDA-Public Use
  Company Number: None

PATIENT
  Weight: 16.4 kg

DRUGS (4)
  1. VINCRISTINE SULFATE. [Concomitant]
     Active Substance: VINCRISTINE SULFATE
  2. ONCASPAR [Concomitant]
     Active Substance: PEGASPARGASE
  3. CYTARABINE. [Suspect]
     Active Substance: CYTARABINE
  4. CYTARABINE. [Concomitant]
     Active Substance: CYTARABINE

REACTIONS (5)
  - Decreased appetite [None]
  - Abdominal pain [None]
  - Intestinal perforation [None]
  - Flatulence [None]
  - Pneumoperitoneum [None]

NARRATIVE: CASE EVENT DATE: 20191009
